FAERS Safety Report 4534239-1 (Version None)
Quarter: 2004Q4

REPORT INFORMATION
  Report Type: 
  Country: None (occurrence: None)
  Receive Date: 20041214
  Receipt Date: 20040826
  Transmission Date: 20050328
  Serious: No
  Sender: FDA-Public Use
  Company Number: 2004232015US

PATIENT
  Sex: Female
  Weight: 75.3 kg

DRUGS (8)
  1. BEXTRA [Suspect]
     Indication: RHEUMATOID ARTHRITIS
     Dosage: 10 MG QD ORAL
     Route: 048
     Dates: end: 20040801
  2. METHADONE [Concomitant]
  3. LEXAPRO [Concomitant]
  4. ALLEGRA [Concomitant]
  5. FLEXERIL [Concomitant]
  6. ALBUTEROL [Concomitant]
  7. GUAIFENESIN/PSEUDOP. HCL/COD. PHOS. ^SCHEIN^ [Concomitant]
  8. XANAX [Concomitant]

REACTIONS (10)
  - AGITATION [None]
  - ALOPECIA [None]
  - ANXIETY [None]
  - INCREASED APPETITE [None]
  - INSOMNIA [None]
  - NERVOUSNESS [None]
  - ORAL CANDIDIASIS [None]
  - POLLAKIURIA [None]
  - SUICIDAL IDEATION [None]
  - TINEA PEDIS [None]
